FAERS Safety Report 18600659 (Version 1)
Quarter: 2020Q4

REPORT INFORMATION
  Report Type: Other
  Country: CN (occurrence: CN)
  Receive Date: 20201210
  Receipt Date: 20201210
  Transmission Date: 20210114
  Serious: Yes (Hospitalization, Other)
  Sender: FDA-Public Use
  Company Number: CN-APPCO PHARMA LLC-2101829

PATIENT
  Age: 55 Year
  Sex: Female

DRUGS (2)
  1. FLUOXETINE HYDROCHLORIDE. [Suspect]
     Active Substance: FLUOXETINE HYDROCHLORIDE
     Indication: DEPRESSION
     Route: 065
  2. CELECOXIB. [Interacting]
     Active Substance: CELECOXIB
     Route: 065

REACTIONS (3)
  - Liver injury [Recovered/Resolved]
  - Cholecystitis [Recovered/Resolved]
  - Drug interaction [Recovered/Resolved]
